FAERS Safety Report 6696912-9 (Version None)
Quarter: 2010Q2

REPORT INFORMATION
  Report Type: 
  Country: None (occurrence: None)
  Receive Date: 20100426
  Receipt Date: 20100414
  Transmission Date: 20101027
  Serious: Yes (Hospitalization, Disabling, Other)
  Sender: FDA-Public Use
  Company Number: PHHY2010DE24449

PATIENT
  Sex: Male
  Weight: 108 kg

DRUGS (17)
  1. ALISKIREN ALI+ [Suspect]
     Indication: HYPERTENSION
     Dosage: UNK
     Dates: start: 20090309
  2. METOPROLOL [Suspect]
     Indication: CORONARY ARTERY DISEASE
     Dosage: 0-0-1
  3. LANTUS [Concomitant]
     Indication: DIABETES MELLITUS
     Dosage: 1-1-1
  4. ACE INHIBITOR NOS [Concomitant]
     Dosage: UNK
     Dates: start: 20091020, end: 20090309
  5. RAMIPRIL [Concomitant]
     Indication: HYPERTENSION
     Dosage: 1-0-0
  6. ANGIOTENSIN CONVERTING ENZYME BLOCKERS [Concomitant]
     Dosage: UNK
     Dates: end: 20090309
  7. BETA BLOCKING AGENTS [Concomitant]
  8. CALCIUM CHANNEL BLOCKERS [Concomitant]
  9. TORASEMIDE [Concomitant]
     Indication: OEDEMA
     Dosage: 0.25 MG PER DAY
  10. TORASEMIDE [Concomitant]
     Dosage: 10 MG, 0-2-0
  11. PENTAERYTHRITOL TETRANITRATE [Concomitant]
     Indication: HYPERTENSION
     Dosage: 1-0-0
  12. ANTIPLATELET [Concomitant]
  13. MARCUMAR [Concomitant]
     Indication: EMBOLISM
  14. SIMVASTATIN [Concomitant]
     Indication: HYPERCHOLESTEROLAEMIA
     Dosage: 0-0-1
  15. MOLSIDOMINE [Concomitant]
     Indication: CORONARY ARTERY DISEASE
     Dosage: 1-0-0
  16. PANTOPRAZOLE [Concomitant]
     Indication: GASTRITIS
  17. NOVONORM [Concomitant]
     Indication: DIABETES MELLITUS
     Dosage: 0-0-1

REACTIONS (30)
  - ANGINA PECTORIS [None]
  - ATRIAL FIBRILLATION [None]
  - BLOOD CREATININE INCREASED [None]
  - BLOOD GLUCOSE INCREASED [None]
  - BLOOD PRESSURE DECREASED [None]
  - BLOOD PRESSURE INCREASED [None]
  - BLOOD TRIGLYCERIDES INCREASED [None]
  - CARDIAC FAILURE [None]
  - CEREBROVASCULAR ACCIDENT [None]
  - DIABETES MELLITUS [None]
  - DIABETIC NEPHROPATHY [None]
  - DIABETIC NEUROPATHY [None]
  - DIABETIC RETINOPATHY [None]
  - DYSPNOEA [None]
  - ELECTROCARDIOGRAM QRS COMPLEX PROLONGED [None]
  - EMBOLISM [None]
  - GASTRITIS [None]
  - GLYCOSYLATED HAEMOGLOBIN INCREASED [None]
  - HEART RATE DECREASED [None]
  - HYPERCHOLESTEROLAEMIA [None]
  - HYPERTENSION [None]
  - LEFT VENTRICULAR HYPERTROPHY [None]
  - MICROALBUMINURIA [None]
  - MYOCARDIAL INFARCTION [None]
  - OEDEMA [None]
  - PERCUTANEOUS CORONARY INTERVENTION [None]
  - PERIPHERAL ARTERIAL OCCLUSIVE DISEASE [None]
  - RENAL DISORDER [None]
  - TACHYCARDIA [None]
  - VASCULAR GRAFT [None]
